FAERS Safety Report 16156762 (Version 2)
Quarter: 2019Q2

REPORT INFORMATION
  Report Type: Spontaneous
  Country: ES (occurrence: ES)
  Receive Date: 20190404
  Receipt Date: 20190425
  Transmission Date: 20190711
  Serious: Yes (Hospitalization)
  Sender: FDA-Public Use
  Company Number: ES-ACCORD-118271

PATIENT
  Age: 52 Year
  Sex: Male
  Weight: 66 kg

DRUGS (1)
  1. OXALIPLATIN ACCORD [Suspect]
     Active Substance: OXALIPLATIN
     Indication: GASTRIC CANCER
     Dosage: STRENGTH 5 MG/ML  EFG, 1 VIAL OF 20 ML,149,6 MG EVERY 14 DAYS, ALSO RECEIVED FROM 09-JAN-2019
     Route: 041
     Dates: start: 20181227, end: 20181227

REACTIONS (5)
  - Pruritus [Recovered/Resolved]
  - Respiratory distress [Recovered/Resolved]
  - Hypersensitivity [Recovered/Resolved]
  - Rash [Recovered/Resolved]
  - Off label use [Unknown]

NARRATIVE: CASE EVENT DATE: 20181227
